FAERS Safety Report 4780531-5 (Version None)
Quarter: 2005Q3

REPORT INFORMATION
  Report Type: 
  Country: None (occurrence: None)
  Receive Date: 20050926
  Receipt Date: 20050913
  Transmission Date: 20060218
  Serious: Yes (Other)
  Sender: FDA-Public Use
  Company Number: 2005127926

PATIENT
  Age: 55 Year
  Sex: Male

DRUGS (8)
  1. NORVASC [Suspect]
     Indication: ILL-DEFINED DISORDER
     Dosage: 5 MG (5 MG, 1 IN 1 D)
     Dates: start: 20050101
  2. LIPITOR [Suspect]
     Indication: BLOOD CHOLESTEROL INCREASED
     Dosage: 20 MG (20 MG, 1 IN 1 D)
     Dates: start: 20050101
  3. XANAX [Suspect]
     Indication: SLEEP DISORDER
     Dosage: 20 MG (20 MG, 1 IN 1 D)
     Dates: start: 20050101
  4. LOTREL [Concomitant]
  5. COREG [Concomitant]
  6. ALPRAZOLAM [Concomitant]
  7. CYMBALTA (DULOXETINE HYDROCHLORIDDE) [Concomitant]
  8. NITROQUICK (GLYCERYL TRINITRATE) [Concomitant]

REACTIONS (5)
  - CEREBROVASCULAR ACCIDENT [None]
  - DEPRESSION [None]
  - GAIT DISTURBANCE [None]
  - HEMIPARESIS [None]
  - WEIGHT INCREASED [None]
